FAERS Safety Report 5146806-5 (Version None)
Quarter: 2006Q4

REPORT INFORMATION
  Report Type: 
  Country: None (occurrence: None)
  Receive Date: 20061109
  Receipt Date: 20060921
  Transmission Date: 20070319
  Serious: Yes (Other)
  Sender: FDA-Public Use
  Company Number: FR-BRISTOL-MYERS SQUIBB COMPANY-13519327

PATIENT
  Age: 66 Year
  Sex: Female
  Weight: 80 kg

DRUGS (8)
  1. ABILIFY [Suspect]
     Indication: DELUSION
     Route: 048
     Dates: start: 20060301
  2. ABILIFY [Suspect]
     Indication: HALLUCINATION
     Route: 048
     Dates: start: 20060301
  3. ABILIFY [Suspect]
     Indication: PSYCHOTIC DISORDER
     Route: 048
     Dates: start: 20060301
  4. ARIMIDEX [Suspect]
     Indication: BREAST CANCER
     Route: 048
  5. PRAZEPAM [Concomitant]
  6. IMOVANE [Concomitant]
  7. EFFERALGAN [Concomitant]
     Dates: start: 20051001
  8. FORLAX [Concomitant]
     Dates: start: 20051001

REACTIONS (1)
  - PANCYTOPENIA [None]
